FAERS Safety Report 25553647 (Version 3)
Quarter: 2025Q3

REPORT INFORMATION
  Report Type: Report from Study
  Country: CN (occurrence: CN)
  Receive Date: 20250715
  Receipt Date: 20250827
  Transmission Date: 20251020
  Serious: Yes (Other)
  Sender: ROCHE
  Company Number: CN-ROCHE-10000331364

PATIENT
  Age: 67 Year
  Sex: Male
  Weight: 60 kg

DRUGS (54)
  1. RITUXIMAB [Suspect]
     Active Substance: RITUXIMAB
     Indication: Diffuse large B-cell lymphoma
     Route: 042
     Dates: start: 20240719, end: 20240719
  2. POLATUZUMAB VEDOTIN [Suspect]
     Active Substance: POLATUZUMAB VEDOTIN
     Indication: Diffuse large B-cell lymphoma
     Route: 042
     Dates: start: 20240720, end: 20240720
  3. POLATUZUMAB VEDOTIN [Suspect]
     Active Substance: POLATUZUMAB VEDOTIN
     Route: 042
     Dates: start: 20250219, end: 20250219
  4. GEMCITABINE [Suspect]
     Active Substance: GEMCITABINE
     Indication: Diffuse large B-cell lymphoma
     Route: 042
     Dates: start: 20240721, end: 20240721
  5. OXALIPLATIN [Suspect]
     Active Substance: OXALIPLATIN
     Indication: Diffuse large B-cell lymphoma
     Route: 042
     Dates: start: 20240721, end: 20240721
  6. METHYLPREDNISOLONE SODIUM SUCCINATE [Suspect]
     Active Substance: METHYLPREDNISOLONE SODIUM SUCCINATE
     Indication: Diffuse large B-cell lymphoma
     Route: 042
     Dates: start: 20250220, end: 20250224
  7. ZANUBRUTINIB [Suspect]
     Active Substance: ZANUBRUTINIB
     Indication: Diffuse large B-cell lymphoma
     Route: 048
     Dates: start: 20250221
  8. TUCIDINOSTAT [Suspect]
     Active Substance: TUCIDINOSTAT
     Indication: Diffuse large B-cell lymphoma
     Route: 048
     Dates: start: 20250220
  9. CYCLOPHOSPHAMIDE [Suspect]
     Active Substance: CYCLOPHOSPHAMIDE
     Indication: Diffuse large B-cell lymphoma
     Route: 042
     Dates: start: 20250220, end: 20250220
  10. MITOXANTRONE [Suspect]
     Active Substance: MITOXANTRONE HYDROCHLORIDE
     Indication: Diffuse large B-cell lymphoma
     Route: 042
     Dates: start: 20250220, end: 20250220
  11. ACETAMINOPHEN [Concomitant]
     Active Substance: ACETAMINOPHEN
     Route: 048
     Dates: start: 20240720
  12. AMLODIPINE BESYLATE [Concomitant]
     Active Substance: AMLODIPINE BESYLATE
     Route: 048
     Dates: start: 20240728
  13. torasemide piece [Concomitant]
     Route: 048
     Dates: start: 20240728
  14. SPIRONOLACTONE [Concomitant]
     Active Substance: SPIRONOLACTONE
     Route: 048
     Dates: start: 20240728
  15. Glutathione Buccal Tablets [Concomitant]
     Route: 048
     Dates: start: 20240728
  16. HERBALS\DIAMMONIUM GLYCYRRHIZINATE [Concomitant]
     Active Substance: HERBALS\DIAMMONIUM GLYCYRRHIZINATE
     Indication: Prophylaxis
     Route: 048
     Dates: start: 20240728
  17. ESOMEPRAZOLE MAGNESIUM [Concomitant]
     Active Substance: ESOMEPRAZOLE MAGNESIUM
     Route: 048
     Dates: start: 20240728
  18. SODIUM BICARBONATE [Concomitant]
     Active Substance: SODIUM BICARBONATE
     Route: 048
     Dates: start: 20240728
  19. FEBUXOSTAT [Concomitant]
     Active Substance: FEBUXOSTAT
     Route: 048
     Dates: start: 20240826
  20. ENTECAVIR [Concomitant]
     Active Substance: ENTECAVIR
     Route: 048
     Dates: start: 20240826
  21. Valaciclovir tablets [Concomitant]
     Route: 048
  22. Valaciclovir tablets [Concomitant]
     Route: 048
     Dates: start: 20241129
  23. Pantoprazole for injection [Concomitant]
     Route: 042
     Dates: start: 20250216, end: 20250224
  24. tathion injection [Concomitant]
     Route: 042
     Dates: start: 20250216, end: 20250224
  25. POTASSIUM CHLORIDE [Concomitant]
     Active Substance: POTASSIUM CHLORIDE
     Route: 042
     Dates: start: 20250216, end: 20250224
  26. SODIUM BICARBONATE [Concomitant]
     Active Substance: SODIUM BICARBONATE
     Route: 042
     Dates: start: 20250216, end: 20250222
  27. SODIUM BICARBONATE [Concomitant]
     Active Substance: SODIUM BICARBONATE
     Route: 042
     Dates: start: 20250222, end: 20250224
  28. cefepime injections [Concomitant]
     Route: 042
     Dates: start: 20250216, end: 20250223
  29. ENOXAPARIN SODIUM [Concomitant]
     Active Substance: ENOXAPARIN SODIUM
     Route: 058
     Dates: start: 20250218, end: 20250224
  30. Vitamin B6 inj [Concomitant]
     Route: 042
     Dates: start: 20250219, end: 20250224
  31. Methylprednisolone for injection [Concomitant]
     Route: 042
     Dates: start: 20250221, end: 20250224
  32. Promethazine injection [Concomitant]
     Route: 030
     Dates: start: 20250219, end: 20250220
  33. Acetaminophen sustained-release tablets [Concomitant]
     Route: 048
     Dates: start: 20250219, end: 20250219
  34. DEXRAZOXANE [Concomitant]
     Active Substance: DEXRAZOXANE
     Route: 042
     Dates: start: 20250220, end: 20250220
  35. ondansetron inj [Concomitant]
     Dates: start: 20250220, end: 20250220
  36. furosemide inj [Concomitant]
     Dates: start: 20250221, end: 20250221
  37. ALBUMIN HUMAN [Concomitant]
     Active Substance: ALBUMIN HUMAN
     Indication: Prophylaxis
     Route: 042
     Dates: start: 20250223, end: 20250223
  38. OMEPRAZOLE [Concomitant]
     Active Substance: OMEPRAZOLE
     Route: 048
     Dates: start: 20250224
  39. METHYLPREDNISOLONE [Concomitant]
     Active Substance: METHYLPREDNISOLONE
     Route: 048
     Dates: start: 20250224, end: 20250226
  40. METHYLPREDNISOLONE [Concomitant]
     Active Substance: METHYLPREDNISOLONE
     Route: 048
     Dates: start: 20250226, end: 20250228
  41. METHYLPREDNISOLONE [Concomitant]
     Active Substance: METHYLPREDNISOLONE
     Route: 048
     Dates: start: 20250228
  42. PANTOPRAZOLE SODIUM I.V. [Concomitant]
     Active Substance: PANTOPRAZOLE SODIUM
  43. Gabexate for injection [Concomitant]
  44. different glycyrrhizic acid magnesium injection [Concomitant]
  45. vitamin k1 injection [Concomitant]
  46. DAPTOMYCIN [Concomitant]
     Active Substance: DAPTOMYCIN
  47. ETHAMSYLATE [Concomitant]
     Active Substance: ETHAMSYLATE
  48. recombinant human thrombopoietin injection [Concomitant]
  49. TORSEMIDE [Concomitant]
     Active Substance: TORSEMIDE
  50. MORPHINE [Concomitant]
     Active Substance: MORPHINE
  51. METOPROLOL [Concomitant]
     Active Substance: METOPROLOL
  52. DIAZEPAM [Concomitant]
     Active Substance: DIAZEPAM
  53. CEFOPERAZONE\SULBACTAM [Concomitant]
     Active Substance: CEFOPERAZONE\SULBACTAM
  54. Human granulocyte stimulating factor injection [Concomitant]
     Dates: start: 20250305

REACTIONS (4)
  - Lymphocyte count decreased [Not Recovered/Not Resolved]
  - Neutrophil count decreased [Not Recovered/Not Resolved]
  - Platelet count decreased [Not Recovered/Not Resolved]
  - White blood cell count decreased [Not Recovered/Not Resolved]

NARRATIVE: CASE EVENT DATE: 20250305
